FAERS Safety Report 14193311 (Version 9)
Quarter: 2018Q4

REPORT INFORMATION
  Report Type: Spontaneous
  Country: GB (occurrence: GB)
  Receive Date: 20171116
  Receipt Date: 20181106
  Transmission Date: 20190204
  Serious: Yes (Death, Hospitalization, Other)
  Sender: FDA-Public Use
  Company Number: GB-CONCORDIA PHARMACEUTICALS INC.-GSH201603-001658

PATIENT
  Age: 49 Year
  Sex: Female

DRUGS (6)
  1. ADOPORT (SANDOZ) [Suspect]
     Active Substance: TACROLIMUS
     Indication: IMMUNOSUPPRESSION
     Dosage: 10 MG, UNK
     Route: 065
  2. ADOPORT (SANDOZ) [Suspect]
     Active Substance: TACROLIMUS
     Dosage: 1 MG, UNK
     Route: 065
  3. MYFENAX [Suspect]
     Active Substance: MYCOPHENOLATE MOFETIL
     Indication: IMMUNOSUPPRESSION
     Dosage: 500 MG, UNK
     Route: 065
  4. ADOPORT (SANDOZ) [Suspect]
     Active Substance: TACROLIMUS
     Dosage: 5 MG, UNK
     Route: 065
  5. ADOPORT (SANDOZ) [Suspect]
     Active Substance: TACROLIMUS
     Dosage: 5 MG, UNK
     Route: 065
  6. PREDNISOLONE. [Suspect]
     Active Substance: PREDNISOLONE
     Indication: IMMUNOSUPPRESSION
     Dosage: 5 MG, UNK
     Route: 065

REACTIONS (3)
  - Coma [Unknown]
  - Dyspnoea [Fatal]
  - Dependence on respirator [Unknown]
